APPROVED DRUG PRODUCT: FOLIC ACID
Active Ingredient: FOLIC ACID
Strength: 5MG/ML
Dosage Form/Route: INJECTABLE;INJECTION
Application: A081066 | Product #001
Applicant: BEN VENUE LABORATORIES INC
Approved: Dec 29, 1993 | RLD: No | RS: No | Type: DISCN